FAERS Safety Report 6170074-9 (Version None)
Quarter: 2009Q2

REPORT INFORMATION
  Report Type: 
  Country: None (occurrence: None)
  Receive Date: 20090428
  Receipt Date: 20090421
  Transmission Date: 20091009
  Serious: Yes (Other)
  Sender: FDA-Public Use
  Company Number: A0779668A

PATIENT
  Age: 19 Year
  Sex: Female

DRUGS (2)
  1. ADVAIR HFA [Suspect]
     Indication: ASTHMA
     Dosage: 1PUFF TWICE PER DAY
     Route: 055
     Dates: start: 20090301
  2. NO CONCURRENT MEDICATION [Concomitant]

REACTIONS (5)
  - ASTHMA [None]
  - DEPRESSED MOOD [None]
  - FATIGUE [None]
  - MALAISE [None]
  - PRODUCT QUALITY ISSUE [None]
